FAERS Safety Report 19452633 (Version 1)
Quarter: 2021Q2

REPORT INFORMATION
  Report Type: Spontaneous
  Country: DE (occurrence: DE)
  Receive Date: 20210623
  Receipt Date: 20210623
  Transmission Date: 20210717
  Serious: Yes (Hospitalization, Other)
  Sender: FDA-Public Use
  Company Number: DE-AUROBINDO-AUR-APL-2021-025721

PATIENT
  Age: 71 Year
  Sex: Male

DRUGS (7)
  1. SUFENTANIL [Concomitant]
     Active Substance: SUFENTANIL
     Indication: MAINTENANCE OF ANAESTHESIA
     Dosage: UNK
     Route: 042
  2. ROPIVACAINE. [Suspect]
     Active Substance: ROPIVACAINE HYDROCHLORIDE
     Indication: PERIPHERAL NERVE OPERATION
     Dosage: 6?8 ML/H
     Route: 065
  3. LICAIN 1% SOLUTION FOR INJECTION [Suspect]
     Active Substance: LIDOCAINE HYDROCHLORIDE
     Indication: PERIPHERAL NERVE OPERATION
     Dosage: INTERSCALENE BRACHIAL PLEXUS BLOCK
     Route: 065
  4. ROPIVACAINE. [Suspect]
     Active Substance: ROPIVACAINE HYDROCHLORIDE
     Indication: LOCAL ANAESTHESIA
     Dosage: 6?8 ML/H
     Route: 065
  5. ROPIVACAINE. [Suspect]
     Active Substance: ROPIVACAINE HYDROCHLORIDE
     Indication: PERIPHERAL NERVE OPERATION
  6. ROPIVACAINE. [Suspect]
     Active Substance: ROPIVACAINE HYDROCHLORIDE
     Indication: LOCAL ANAESTHESIA
     Dosage: INTERSCALENE BRACHIAL PLEXUS BLOCK
     Route: 065
  7. PROPOFOL. [Concomitant]
     Active Substance: PROPOFOL
     Indication: MAINTENANCE OF ANAESTHESIA
     Dosage: UNK
     Route: 042

REACTIONS (3)
  - Neurotoxicity [Recovering/Resolving]
  - Altered state of consciousness [Recovered/Resolved]
  - Nervous system disorder [Recovering/Resolving]
